FAERS Safety Report 7327956-1 (Version None)
Quarter: 2011Q1

REPORT INFORMATION
  Report Type: 
  Country: None (occurrence: None)
  Receive Date: 20110225
  Receipt Date: 20110225
  Transmission Date: 20110831
  Serious: No
  Sender: FDA-Public Use
  Company Number: None

PATIENT
  Sex: Female
  Weight: 8.1647 kg

DRUGS (1)
  1. AMOXICILLIN [Suspect]
     Indication: SINUSITIS
     Dosage: AMOX (400/5) 300MG BID ORAL
     Route: 048
     Dates: start: 20110212, end: 20110217

REACTIONS (3)
  - RASH GENERALISED [None]
  - URTICARIA [None]
  - RASH PRURITIC [None]
